FAERS Safety Report 5422052-2 (Version None)
Quarter: 2007Q3

REPORT INFORMATION
  Report Type: 
  Country: None (occurrence: None)
  Receive Date: 20070820
  Receipt Date: 20070809
  Transmission Date: 20080115
  Serious: Yes (Hospitalization)
  Sender: FDA-Public Use
  Company Number: 163-21880-07070377

PATIENT
  Age: 50 Year
  Sex: Male
  Weight: 150.1406 kg

DRUGS (2)
  1. REVLIMID [Suspect]
     Indication: CHRONIC LYMPHOCYTIC LEUKAEMIA
     Dosage: 25 MG, DAILY ON DAYS 1-21, ORAL
     Route: 048
     Dates: start: 20070611, end: 20070701
  2. DEXAMETHASONE TAB [Suspect]
     Indication: CHRONIC LYMPHOCYTIC LEUKAEMIA
     Dosage: ON DAYS 1-7, 4MG ON DAYS 8-14,

REACTIONS (4)
  - CHRONIC LYMPHOCYTIC LEUKAEMIA [None]
  - LYMPHADENOPATHY [None]
  - TONSILLAR HYPERTROPHY [None]
  - TUMOUR FLARE [None]
